FAERS Safety Report 9268934 (Version 1)
Quarter: 2013Q2

REPORT INFORMATION
  Report Type: Spontaneous
  Country: MA (occurrence: MA)
  Receive Date: 20130503
  Receipt Date: 20130503
  Transmission Date: 20140414
  Serious: Yes (Other)
  Sender: FDA-Public Use
  Company Number: MA-ABBOTT-13P-110-1081114-00

PATIENT
  Age: 24 Year
  Sex: Female

DRUGS (13)
  1. SEVOFLURANE [Suspect]
     Indication: GENERAL ANAESTHESIA
  2. HYDROXIZINE [Concomitant]
     Indication: PREMEDICATION
  3. HYDROXIZINE [Concomitant]
  4. CEFAZOLIN [Concomitant]
     Indication: PRODUCT USED FOR UNKNOWN INDICATION
  5. BUPIVACAINE [Concomitant]
     Indication: SPINAL ANAESTHESIA
  6. FENTANYL [Concomitant]
     Indication: SPINAL ANAESTHESIA
  7. FENTANYL [Concomitant]
     Indication: GENERAL ANAESTHESIA
  8. PROPOFOL [Concomitant]
     Indication: GENERAL ANAESTHESIA
  9. CISATRACURIUM [Concomitant]
     Indication: GENERAL ANAESTHESIA
  10. OXYGEN [Concomitant]
     Indication: GENERAL ANAESTHESIA
  11. PARACETAMOL [Concomitant]
     Indication: ANALGESIC THERAPY
  12. NEFOPAM [Concomitant]
     Indication: ANALGESIC THERAPY
  13. PARECOXIB [Concomitant]
     Indication: ANALGESIC THERAPY

REACTIONS (1)
  - Neurological decompensation [Not Recovered/Not Resolved]
